FAERS Safety Report 4836463-7 (Version None)
Quarter: 2005Q4

REPORT INFORMATION
  Report Type: 
  Country: None (occurrence: None)
  Receive Date: 20051118
  Receipt Date: 20051109
  Transmission Date: 20060501
  Serious: Yes (Life-Threatening, Hospitalization, Other)
  Sender: FDA-Public Use
  Company Number: 2004051195

PATIENT
  Age: 43 Year
  Sex: Female
  Weight: 50 kg

DRUGS (6)
  1. RELPAX [Suspect]
     Indication: MIGRAINE
     Dosage: 20 MG (AS NECESSARY), ORAL
     Route: 048
     Dates: start: 20040628, end: 20040720
  2. MEYLON (SODIUM BICARBONATE) [Suspect]
     Indication: ILL-DEFINED DISORDER
     Dosage: INTRAVENOUS
     Route: 042
     Dates: start: 20040717
  3. PRIMPERAN TAB [Suspect]
     Indication: ILL-DEFINED DISORDER
     Dosage: INTRAVENOUS
     Route: 042
     Dates: start: 20040717
  4. ALL OTHER THERAPEUTIC PRODUCTS (ALL OTHER THERAPEUTIC PRODUCTS) [Suspect]
     Indication: ILL-DEFINED DISORDER
     Dosage: INTRAVENOUS
     Route: 042
     Dates: start: 20040717
  5. MYONAL (EPERISONE HYDROCHLORIDE) [Concomitant]
  6. VOLTAREN [Concomitant]

REACTIONS (17)
  - CARDIAC ARREST [None]
  - COMPUTERISED TOMOGRAM ABNORMAL [None]
  - CONTUSION [None]
  - CONVULSION [None]
  - DEPRESSION [None]
  - DIZZINESS [None]
  - FALL [None]
  - LOSS OF CONSCIOUSNESS [None]
  - MENTAL DISORDER [None]
  - NAUSEA [None]
  - NERVOUSNESS [None]
  - RESPIRATORY ARREST [None]
  - SKIN LACERATION [None]
  - TONIC CONVULSION [None]
  - VISUAL ACUITY REDUCED [None]
  - VITREOUS FLOATERS [None]
  - WOUND [None]
